FAERS Safety Report 8463385 (Version 2)
Quarter: 2016Q1

REPORT INFORMATION
  Report Type: Report from Study
  Country: US (occurrence: US)
  Receive Date: 20120316
  Receipt Date: 20160128
  Transmission Date: 20160526
  Serious: Yes (Hospitalization, Other)
  Sender: FDA-Public Use
  Company Number: US-ROCHE-1047640

PATIENT

DRUGS (4)
  1. TRASTUZUMAB [Suspect]
     Active Substance: TRASTUZUMAB
     Indication: BREAST CANCER
     Dosage: OVER 90 MIN WK 1
     Route: 042
     Dates: start: 20111024
  2. PACLITAXEL. [Suspect]
     Active Substance: PACLITAXEL
     Indication: BREAST CANCER
     Route: 042
     Dates: start: 20111024
  3. TRASTUZUMAB [Suspect]
     Active Substance: TRASTUZUMAB
     Dosage: OVER 30 MIN FOR 15 WKS
     Route: 042
  4. LAPATINIB [Suspect]
     Active Substance: LAPATINIB
     Indication: BREAST CANCER
     Dosage: LAST DOSE: 19 DEC2011
     Route: 048
     Dates: start: 20111024

REACTIONS (5)
  - Embolism [Unknown]
  - Dyspnoea [Unknown]
  - Cystitis [Unknown]
  - Pyrexia [Unknown]
  - Flank pain [Unknown]

NARRATIVE: CASE EVENT DATE: 20120101
